FAERS Safety Report 12670741 (Version 1)
Quarter: 2016Q3

REPORT INFORMATION
  Report Type: Spontaneous
  Country: US (occurrence: US)
  Receive Date: 20160822
  Receipt Date: 20160822
  Transmission Date: 20161109
  Serious: No
  Sender: FDA-Public Use
  Company Number: US-JAZZ-2016-US-005878

PATIENT
  Sex: Male

DRUGS (17)
  1. XYREM [Suspect]
     Active Substance: SODIUM OXYBATE
     Indication: ESSENTIAL TREMOR
     Dosage: 1 G, BID
     Route: 048
     Dates: start: 200904, end: 201103
  2. ALLOPURINOL. [Concomitant]
     Active Substance: ALLOPURINOL
  3. NIASPAN [Concomitant]
     Active Substance: NIACIN
  4. OMEGA 3 [Concomitant]
     Active Substance: OMEGA-3 FATTY ACIDS
  5. TIMOLOL MALEATE. [Concomitant]
     Active Substance: TIMOLOL MALEATE
  6. TRAVATAN [Concomitant]
     Active Substance: TRAVOPROST
  7. AZOPT [Concomitant]
     Active Substance: BRINZOLAMIDE
  8. PLAVIX [Concomitant]
     Active Substance: CLOPIDOGREL BISULFATE
  9. VITAMINS [Concomitant]
     Active Substance: VITAMINS
  10. XYREM [Suspect]
     Active Substance: SODIUM OXYBATE
     Dosage: 1 G, BID
     Route: 048
     Dates: start: 201201
  11. FLOMAX [Concomitant]
     Active Substance: TAMSULOSIN HYDROCHLORIDE
  12. XYREM [Suspect]
     Active Substance: SODIUM OXYBATE
     Dosage: DOSE ADJUSTMENTS
     Route: 048
     Dates: start: 201103, end: 201201
  13. SALT [Concomitant]
     Active Substance: SODIUM CHLORIDE
  14. AVODART [Concomitant]
     Active Substance: DUTASTERIDE
  15. TOPROL XL [Concomitant]
     Active Substance: METOPROLOL SUCCINATE
  16. CITRACAL [Concomitant]
     Active Substance: CALCIUM CITRATE
  17. SYNTHROID [Concomitant]
     Active Substance: LEVOTHYROXINE SODIUM

REACTIONS (1)
  - Speech disorder [Unknown]
